FAERS Safety Report 24692126 (Version 1)
Quarter: 2024Q4

REPORT INFORMATION
  Report Type: Spontaneous
  Country: US (occurrence: US)
  Receive Date: 20241203
  Receipt Date: 20241203
  Transmission Date: 20250114
  Serious: No
  Sender: ANI
  Company Number: US-ANIPHARMA-2024-US-049856

PATIENT
  Age: 73 Year
  Sex: Male
  Weight: 117.94 kg

DRUGS (3)
  1. VANCOMYCIN HYDROCHLORIDE [Suspect]
     Active Substance: VANCOMYCIN HYDROCHLORIDE
     Indication: Clostridium difficile infection
     Dosage: 2 CAPSULES DAILY
     Route: 048
     Dates: start: 20240816
  2. Centrum vitamin [Concomitant]
  3. Banatrol [Concomitant]

REACTIONS (3)
  - Flatulence [Not Recovered/Not Resolved]
  - Mucous stools [Unknown]
  - Diarrhoea [Not Recovered/Not Resolved]

NARRATIVE: CASE EVENT DATE: 20240910
